FAERS Safety Report 15905586 (Version 1)
Quarter: 2019Q1

REPORT INFORMATION
  Report Type: Spontaneous
  Country: SE (occurrence: SE)
  Receive Date: 20190204
  Receipt Date: 20190204
  Transmission Date: 20190417
  Serious: Yes (Other)
  Sender: FDA-Public Use
  Company Number: SE-009507513-1901SWE012245

PATIENT
  Age: 90 Year
  Sex: Female

DRUGS (1)
  1. ALENDRONATE SODIUM. [Suspect]
     Active Substance: ALENDRONATE SODIUM
     Dosage: UNK
     Route: 065
     Dates: start: 201009, end: 20170726

REACTIONS (2)
  - Cardiac fibrillation [Unknown]
  - Femur fracture [Unknown]

NARRATIVE: CASE EVENT DATE: 20170726
